FAERS Safety Report 8236696-6 (Version None)
Quarter: 2012Q1

REPORT INFORMATION
  Report Type: 
  Country: None (occurrence: None)
  Receive Date: 20120326
  Receipt Date: 20120326
  Transmission Date: 20120608
  Serious: Yes (Hospitalization)
  Sender: FDA-Public Use
  Company Number: None

PATIENT
  Age: 56 Year
  Sex: Female

DRUGS (12)
  1. VITAMIN C INTRAVENOUS INFUSION [Suspect]
     Indication: PANCREATIC CARCINOMA METASTATIC
     Dosage: 100G/INFUSION
     Route: 042
     Dates: start: 20120214, end: 20120223
  2. LOVENOX [Concomitant]
  3. ACCUPRIL [Concomitant]
  4. ERLOTINIB HYDROCHLORIDE [Concomitant]
  5. FENTANYL [Concomitant]
  6. CREON [Concomitant]
  7. MORPHINE [Concomitant]
  8. ATIVAN [Concomitant]
  9. ZOFRAN [Concomitant]
  10. GEMCITABINE [Concomitant]
  11. MEGESTROL ACETATE [Concomitant]
  12. FOLIC ACID [Concomitant]

REACTIONS (4)
  - DEHYDRATION [None]
  - INFECTION [None]
  - WHITE BLOOD CELL COUNT INCREASED [None]
  - DRUG DOSE OMISSION [None]
